FAERS Safety Report 5062117-0 (Version None)
Quarter: 2006Q3

REPORT INFORMATION
  Report Type: 
  Country: None (occurrence: None)
  Receive Date: 20060703
  Receipt Date: 20051004
  Transmission Date: 20061208
  Serious: Yes (Hospitalization)
  Sender: FDA-Public Use
  Company Number: 2005S1009902

PATIENT
  Age: 50 Year
  Sex: Male

DRUGS (3)
  1. CLOZAPINE [Suspect]
     Indication: SCHIZOPHRENIA
     Dosage: 400 MG; HS; PO
     Route: 048
     Dates: end: 20050924
  2. INSULIN [Concomitant]
  3. LEVOTHYROXINE SODIUM [Concomitant]

REACTIONS (4)
  - ASTHENIA [None]
  - GRANULOCYTOPENIA [None]
  - LETHARGY [None]
  - MALAISE [None]
